FAERS Safety Report 6027292-X (Version None)
Quarter: 2008Q4

REPORT INFORMATION
  Report Type: 
  Country: None (occurrence: None)
  Receive Date: 20081231
  Receipt Date: 20081231
  Transmission Date: 20090506
  Serious: Yes (Hospitalization, Other)
  Sender: FDA-Public Use
  Company Number: None

PATIENT
  Age: 56 Year
  Sex: Female
  Weight: 84.369 kg

DRUGS (4)
  1. NIASPAN [Suspect]
     Indication: LIPIDS INCREASED
     Dosage: 4000MG DAILY PO
     Route: 048
     Dates: start: 20030101, end: 20081201
  2. LIPITOR [Concomitant]
  3. EVISTA [Concomitant]
  4. RESTASIS [Concomitant]

REACTIONS (10)
  - BLOOD GLUCOSE DECREASED [None]
  - DIZZINESS [None]
  - FACE OEDEMA [None]
  - HEPATIC ENZYME INCREASED [None]
  - INTERNATIONAL NORMALISED RATIO INCREASED [None]
  - MYOCARDIAL INFARCTION [None]
  - NAUSEA [None]
  - PROTHROMBIN TIME PROLONGED [None]
  - PRURITUS [None]
  - VOMITING [None]
